FAERS Safety Report 16233955 (Version 1)
Quarter: 2019Q2

REPORT INFORMATION
  Report Type: Spontaneous
  Country: US (occurrence: US)
  Receive Date: 20190423
  Receipt Date: 20190423
  Transmission Date: 20190711
  Serious: Yes (Life-Threatening, Hospitalization)
  Sender: FDA-Public Use
  Company Number: None

PATIENT
  Age: 14 Month
  Sex: Male
  Weight: 9.2 kg

DRUGS (3)
  1. VINCRISTINE [Concomitant]
     Active Substance: VINCRISTINE
     Dates: start: 20190402, end: 20190402
  2. CYCLOPHOSPHAMIDE. [Concomitant]
     Active Substance: CYCLOPHOSPHAMIDE
     Dates: start: 20190402, end: 20190402
  3. DACTINOMYCIN [Suspect]
     Active Substance: DACTINOMYCIN
     Indication: RHABDOMYOSARCOMA
     Dosage: ?          OTHER FREQUENCY:ONE TIME;?
     Route: 040
     Dates: start: 20190402, end: 20190402

REACTIONS (7)
  - Coagulopathy [None]
  - Hepatomegaly [None]
  - Acute hepatic failure [None]
  - Fluid retention [None]
  - Hyperbilirubinaemia [None]
  - Respiratory failure [None]
  - Weight increased [None]

NARRATIVE: CASE EVENT DATE: 20190409
